FAERS Safety Report 4634795-9 (Version None)
Quarter: 2005Q2

REPORT INFORMATION
  Report Type: 
  Country: None (occurrence: None)
  Receive Date: 20050412
  Receipt Date: 20050412
  Transmission Date: 20051028
  Serious: Yes (Hospitalization)
  Sender: FDA-Public Use
  Company Number: None

PATIENT
  Age: 69 Year
  Sex: Male

DRUGS (2)
  1. ERTAPENEM     1 GM [Suspect]
     Indication: LEUKOCYTOSIS
     Dosage: 1 GM   Q24 HOURS  INTRAVENOU
     Route: 042
     Dates: start: 20050325, end: 20050328
  2. ERTAPENEM     1 GM [Suspect]
     Indication: PYREXIA
     Dosage: 1 GM   Q24 HOURS  INTRAVENOU
     Route: 042
     Dates: start: 20050325, end: 20050328

REACTIONS (1)
  - DIARRHOEA [None]
